FAERS Safety Report 7601636-7 (Version None)
Quarter: 2011Q3

REPORT INFORMATION
  Report Type: 
  Country: None (occurrence: None)
  Receive Date: 20110711
  Receipt Date: 20110628
  Transmission Date: 20111222
  Serious: Yes (Hospitalization)
  Sender: FDA-Public Use
  Company Number: DE-BRISTOL-MYERS SQUIBB COMPANY-14646913

PATIENT
  Age: 45 Year
  Sex: Male
  Weight: 83 kg

DRUGS (13)
  1. CORTICOSTEROID [Concomitant]
     Dates: start: 20090518, end: 20090520
  2. ANTIHISTAMINE NOS [Concomitant]
     Dates: start: 20090519, end: 20090519
  3. PANTOPRAZOLE [Concomitant]
     Indication: GASTRITIS PROPHYLAXIS
     Dates: start: 20090420
  4. FOLIC ACID [Concomitant]
     Dates: start: 20090421
  5. METOCLOPRAMIDE [Concomitant]
     Dates: start: 20090507
  6. CETUXIMAB [Suspect]
     Indication: NON-SMALL CELL LUNG CANCER STAGE IV
     Dosage: INITIATED ON 04MAY09 (DOSE-400 MG/M2)D1 CYC 1 ON DAY 1 OF CYCLE 1: 250MG/M2 WKLY
     Route: 042
     Dates: start: 20090504, end: 20090519
  7. VITAMIN B-12 [Concomitant]
     Dates: start: 20090421
  8. MOVIPREP [Concomitant]
     Dates: start: 20090429
  9. CISPLATIN [Suspect]
     Indication: NON-SMALL CELL LUNG CANCER STAGE IV
     Dosage: ON DAY 1 EVERY 21 DAYS.
     Route: 042
     Dates: start: 20090504, end: 20090504
  10. ALIMTA [Suspect]
     Indication: NON-SMALL CELL LUNG CANCER STAGE IV
     Dosage: ON DAY 1 OF 21 DAYS VIAL
     Route: 042
     Dates: start: 20090504, end: 20090504
  11. IBUPROFEN [Concomitant]
     Indication: ANALGESIC THERAPY
     Dates: start: 20090421
  12. OXYGESIC [Concomitant]
     Indication: ANALGESIC THERAPY
     Dates: start: 20090421
  13. NOVAMINSULFON [Concomitant]
     Indication: ANALGESIC THERAPY
     Dates: start: 20090421

REACTIONS (4)
  - TUMOUR PAIN [None]
  - ANAEMIA [None]
  - OBSTRUCTION [None]
  - CYTOKINE RELEASE SYNDROME [None]
